FAERS Safety Report 8080141-0 (Version None)
Quarter: 2012Q1

REPORT INFORMATION
  Report Type: 
  Country: None (occurrence: None)
  Receive Date: 20120129
  Receipt Date: 20111029
  Transmission Date: 20120608
  Serious: No
  Sender: FDA-Public Use
  Company Number: US-ABBOTT-11P-163-0869567-00

PATIENT
  Age: 57 Year
  Sex: Female

DRUGS (11)
  1. HUMIRA [Suspect]
     Indication: CROHN'S DISEASE
     Dates: start: 20110722
  2. BONIVA [Concomitant]
     Indication: OSTEOPOROSIS
  3. LISINOPRIL [Concomitant]
     Indication: BLOOD PRESSURE INCREASED
     Dosage: DAILY
  4. CELEBREX [Concomitant]
     Indication: ARTHRITIS
  5. COLESTIPOL HYDROCHLORIDE [Concomitant]
     Indication: CROHN'S DISEASE
  6. ONDANSETRON HCL [Concomitant]
     Indication: CROHN'S DISEASE
     Dosage: DAILY FOR 3 MONTHS
  7. LANTUS [Concomitant]
     Indication: TYPE 2 DIABETES MELLITUS
     Dosage: AT BEDTIME
  8. ASACOL [Concomitant]
     Indication: CROHN'S DISEASE
  9. IMURAN [Concomitant]
     Indication: CROHN'S DISEASE
     Dosage: DAILY FOR 4 MONTHS
  10. NEXIUM [Concomitant]
     Indication: GASTROOESOPHAGEAL REFLUX DISEASE
     Dosage: DAILY
  11. REGLAN [Concomitant]
     Indication: CROHN'S DISEASE

REACTIONS (3)
  - MALAISE [None]
  - MUSCULOSKELETAL DISCOMFORT [None]
  - BODY TEMPERATURE INCREASED [None]
